FAERS Safety Report 24440672 (Version 2)
Quarter: 2024Q4

REPORT INFORMATION
  Report Type: Report from Study
  Country: US (occurrence: US)
  Receive Date: 20241016
  Receipt Date: 20241017
  Transmission Date: 20250115
  Serious: No
  Sender: ROCHE
  Company Number: US-ROCHE-2995009

PATIENT
  Age: 14 Year
  Sex: Male
  Weight: 64.8 kg

DRUGS (7)
  1. HEMLIBRA [Suspect]
     Active Substance: EMICIZUMAB-KXWH
     Indication: Factor VIII deficiency
     Dosage: DATE OF TREATMENT: 29/JAN/2024, INJECT 150 MG UNDER THE SKIN EVERY 2 WEEKS, COMBINE WITH 105 MG VIAL
     Route: 048
  2. ACETAMINOPHEN [Concomitant]
     Active Substance: ACETAMINOPHEN
  3. AMINOCAPROIC ACID [Concomitant]
     Active Substance: AMINOCAPROIC ACID
  4. METHYLPHENIDATE [Concomitant]
     Active Substance: METHYLPHENIDATE
  5. KETOCONAZOLE [Concomitant]
     Active Substance: KETOCONAZOLE
     Dosage: 2 % CREAM
  6. GUANFACINE [Concomitant]
     Active Substance: GUANFACINE
     Dosage: 1 MG TABLET
  7. ATROPINE [Concomitant]
     Active Substance: ATROPINE
     Dosage: 1 % OPHTHALMIC SOLUTION

REACTIONS (2)
  - Off label use [Unknown]
  - No adverse event [Unknown]
